FAERS Safety Report 4560833-8 (Version None)
Quarter: 2005Q1

REPORT INFORMATION
  Report Type: 
  Country: None (occurrence: None)
  Receive Date: 20050121
  Receipt Date: 20050103
  Transmission Date: 20050727
  Serious: Yes (Death)
  Sender: FDA-Public Use
  Company Number: A04200401129

PATIENT
  Age: 67 Year
  Sex: Male

DRUGS (8)
  1. PLAVIX [Suspect]
     Indication: CORONARY ARTERIAL STENT INSERTION
     Dosage: 300 MG LOADING DOSE FOLLOWED BY 75 MG QD
     Route: 048
     Dates: start: 20041114
  2. SODIUM BICARBONATE - GRANULE [Suspect]
     Dosage: 3 TO 5 TEASPOONS
     Route: 048
  3. MINERAL SALTS [Suspect]
     Route: 048
  4. BELOC-ZOC (METOPROLOL SUCCINATE) [Concomitant]
  5. ASPIRIN [Concomitant]
  6. DELIX PLUS (RAMIPRIL + HYDROCHLOROTHIAZIDE) [Concomitant]
  7. LASIX [Concomitant]
  8. ZOCOR [Concomitant]

REACTIONS (5)
  - CARDIOGENIC SHOCK [None]
  - DRUG INEFFECTIVE [None]
  - DRUG INTERACTION [None]
  - MYOCARDIAL INFARCTION [None]
  - STENT OCCLUSION [None]
